FAERS Safety Report 8510089-6 (Version None)
Quarter: 2012Q3

REPORT INFORMATION
  Report Type: 
  Country: None (occurrence: None)
  Receive Date: 20120713
  Receipt Date: 20120711
  Transmission Date: 20120928
  Serious: No
  Sender: FDA-Public Use
  Company Number: US-PFIZER INC-2012166771

PATIENT
  Sex: Female
  Weight: 61.678 kg

DRUGS (1)
  1. IBUPROFEN (ADVIL) [Suspect]
     Indication: PAIN
     Dosage: 20 MG EVERY 4 TO 6 HOURS, AS NEEDED
     Route: 048
     Dates: start: 20120703

REACTIONS (1)
  - MUSCLE SPASMS [None]
